FAERS Safety Report 25001619 (Version 2)
Quarter: 2025Q2

REPORT INFORMATION
  Report Type: Report from Study
  Country: US (occurrence: US)
  Receive Date: 20250223
  Receipt Date: 20250521
  Transmission Date: 20250717
  Serious: Yes (Other)
  Sender: ABBVIE
  Company Number: US-ABBVIE-6141217

PATIENT
  Age: 74 Year
  Sex: Female

DRUGS (1)
  1. CREON [Suspect]
     Active Substance: PANCRELIPASE AMYLASE\PANCRELIPASE LIPASE\PANCRELIPASE PROTEASE
     Indication: Product used for unknown indication
     Route: 048
     Dates: start: 20220101

REACTIONS (5)
  - Living in residential institution [Not Recovered/Not Resolved]
  - Trigger finger [Not Recovered/Not Resolved]
  - Fall [Unknown]
  - Visual impairment [Unknown]
  - Immobile [Unknown]

NARRATIVE: CASE EVENT DATE: 20240401
